FAERS Safety Report 6030257-5 (Version None)
Quarter: 2009Q1

REPORT INFORMATION
  Report Type: 
  Country: None (occurrence: None)
  Receive Date: 20090105
  Receipt Date: 20090105
  Transmission Date: 20090719
  Serious: Yes (Other)
  Sender: FDA-Public Use
  Company Number: None

PATIENT
  Age: 55 Year
  Sex: Female
  Weight: 72.5755 kg

DRUGS (1)
  1. SIMPLY SLEEP 50 MG TYLENOL [Suspect]
     Indication: SOMNOLENCE
     Dosage: 2 CAPSULES 25 MG EACH BEFORE BED PO
     Route: 048
     Dates: start: 20081231, end: 20081231

REACTIONS (6)
  - ANXIETY [None]
  - DIZZINESS [None]
  - HEART RATE INCREASED [None]
  - INSOMNIA [None]
  - RASH PRURITIC [None]
  - TINNITUS [None]
